FAERS Safety Report 8071569-3 (Version None)
Quarter: 2012Q1

REPORT INFORMATION
  Report Type: 
  Country: None (occurrence: None)
  Receive Date: 20120125
  Receipt Date: 20120119
  Transmission Date: 20120608
  Serious: Yes (Death)
  Sender: FDA-Public Use
  Company Number: MX-PFIZER INC-2012015989

PATIENT
  Age: 64 Year
  Sex: Male
  Weight: 75 kg

DRUGS (6)
  1. LANTUS [Concomitant]
     Indication: DIABETES MELLITUS
     Dosage: 2 UNK, 1X/DAY
     Route: 058
  2. LIPITOR [Suspect]
     Indication: HYPERCHOLESTEROLAEMIA
     Dosage: 10 MG, 1X/DAY
     Route: 048
     Dates: start: 20020101, end: 20120101
  3. GLUCOVANCE [Concomitant]
     Indication: DIABETES MELLITUS
     Dosage: 2 UNK, 1X/DAY
     Route: 048
  4. DIOVAN HCT [Concomitant]
     Indication: DIABETES MELLITUS
     Dosage: 1 UNK, 1X/DAY
     Route: 048
  5. GALVUS [Concomitant]
     Indication: DIABETES MELLITUS
     Dosage: 2 UNK, 1X/DAY
     Route: 048
  6. NORVASC [Suspect]
     Indication: HYPERTENSION
     Dosage: UNK
     Route: 048
     Dates: end: 20120101

REACTIONS (1)
  - MYOCARDIAL INFARCTION [None]
